FAERS Safety Report 19610231 (Version 1)
Quarter: 2021Q3

REPORT INFORMATION
  Report Type: Spontaneous
  Country: US (occurrence: US)
  Receive Date: 20210726
  Receipt Date: 20210726
  Transmission Date: 20211014
  Serious: No
  Sender: FDA-Public Use
  Company Number: US-LEO PHARMA-337508

PATIENT
  Age: 79 Year
  Sex: Female

DRUGS (2)
  1. TACROLIMUS. [Suspect]
     Active Substance: TACROLIMUS
     Indication: LIP DRY
     Route: 061
     Dates: start: 20210628
  2. TACROLIMUS. [Suspect]
     Active Substance: TACROLIMUS
     Indication: CHAPPED LIPS
     Route: 061
     Dates: start: 20210628

REACTIONS (4)
  - Product use in unapproved indication [Unknown]
  - Off label use [Unknown]
  - Rash [Unknown]
  - Oral discomfort [Unknown]
